FAERS Safety Report 9295303 (Version 1)
Quarter: 2013Q2

REPORT INFORMATION
  Report Type: Report from Study
  Country: DE (occurrence: DE)
  Receive Date: 20130517
  Receipt Date: 20130517
  Transmission Date: 20140414
  Serious: Yes (Hospitalization)
  Sender: FDA-Public Use
  Company Number: PHHY2013DE048840

PATIENT
  Sex: Female
  Weight: 81 kg

DRUGS (5)
  1. AFINITOR [Suspect]
     Indication: BREAST CANCER METASTATIC
     Dosage: 5 MG, QD
     Route: 048
     Dates: start: 20130314, end: 20130430
  2. EXEMESTANE [Concomitant]
     Indication: BREAST CANCER METASTATIC
     Dosage: 25 MG, QD
     Route: 048
     Dates: start: 20130314, end: 20130430
  3. DENOSUMAB [Concomitant]
     Dosage: 120 MG
     Dates: start: 20130405
  4. VITAMIN D [Concomitant]
     Dosage: 400 IU/DAY
     Dates: start: 20130405
  5. CALCIUM [Concomitant]
     Dosage: 500 MG/DAY
     Dates: start: 20130405

REACTIONS (1)
  - General physical health deterioration [Recovered/Resolved]
